FAERS Safety Report 5755555-1 (Version None)
Quarter: 2008Q2

REPORT INFORMATION
  Report Type: 
  Country: None (occurrence: None)
  Receive Date: 20080530
  Receipt Date: 20080530
  Transmission Date: 20081010
  Serious: No
  Sender: FDA-Public Use
  Company Number: None

PATIENT
  Age: 22 Year
  Sex: Male
  Weight: 90.7194 kg

DRUGS (4)
  1. STRATTERA [Suspect]
     Indication: ATTENTION DEFICIT/HYPERACTIVITY DISORDER
     Dosage: 80MG Q.D.  PO
     Route: 048
  2. WELLBUTRIN XL [Concomitant]
  3. KLONOPIN [Concomitant]
  4. CLINDETS -- CLINDAMYCIN PLEDGETS [Concomitant]

REACTIONS (1)
  - LIBIDO DECREASED [None]
